FAERS Safety Report 16707320 (Version 2)
Quarter: 2019Q3

REPORT INFORMATION
  Report Type: Spontaneous
  Country: GR (occurrence: GR)
  Receive Date: 20190815
  Receipt Date: 20190816
  Transmission Date: 20191004
  Serious: Yes (Other)
  Sender: FDA-Public Use
  Company Number: GR-PFIZER INC-2019342726

PATIENT
  Age: 78 Year
  Sex: Male

DRUGS (4)
  1. COLISTIN [Concomitant]
     Active Substance: COLISTIN
     Dosage: UNK
     Route: 055
  2. LINEZOLID. [Suspect]
     Active Substance: LINEZOLID
     Dosage: 600 MG, 2X/DAY (PER 12 H)
     Route: 042
  3. COLISTIN [Concomitant]
     Active Substance: COLISTIN
     Dosage: 4.5 IU, 2X/DAY (PER 12 H)
     Route: 042
  4. MEROPENEM. [Suspect]
     Active Substance: MEROPENEM
     Indication: INFECTION PROPHYLAXIS
     Dosage: 1 G, 3X/DAY
     Route: 042

REACTIONS (1)
  - Drug resistance [Unknown]
